FAERS Safety Report 7063247-4 (Version None)
Quarter: 2010Q4

REPORT INFORMATION
  Report Type: 
  Country: None (occurrence: None)
  Receive Date: 20101026
  Receipt Date: 20100611
  Transmission Date: 20110411
  Serious: No
  Sender: FDA-Public Use
  Company Number: US-PFIZER INC-2010073657

PATIENT
  Sex: Female
  Weight: 66.213 kg

DRUGS (4)
  1. LIPITOR [Suspect]
     Indication: BLOOD CHOLESTEROL INCREASED
     Dosage: 10 MG, ALTERNATE DAY
     Route: 048
     Dates: start: 20100214, end: 20100517
  2. CALCIUM [Concomitant]
     Dosage: 400 MG DAILY
     Route: 048
  3. ACETYLSALICYLIC ACID [Concomitant]
     Dosage: 81 MG, ALTERNATE DAY
     Route: 048
  4. VITAMIN D [Concomitant]
     Dosage: 500 MG DAILY

REACTIONS (1)
  - MYALGIA [None]
